FAERS Safety Report 7047430-X (Version None)
Quarter: 2010Q4

REPORT INFORMATION
  Report Type: 
  Country: None (occurrence: None)
  Receive Date: 20101015
  Receipt Date: 20101007
  Transmission Date: 20110411
  Serious: Yes (Hospitalization, Other)
  Sender: FDA-Public Use
  Company Number: US-JNJFOC-20101003898

PATIENT
  Sex: Male
  Weight: 74.84 kg

DRUGS (5)
  1. RISPERDAL [Suspect]
     Indication: VISUAL IMPAIRMENT
     Route: 048
  2. RISPERDAL [Suspect]
     Route: 048
  3. RISPERIDONE [Suspect]
     Indication: VISUAL IMPAIRMENT
     Route: 048
  4. RISPERIDONE [Suspect]
     Route: 048
  5. KEPPRA [Suspect]
     Indication: PRODUCT USED FOR UNKNOWN INDICATION
     Route: 048

REACTIONS (4)
  - ANXIETY [None]
  - ARTERIAL OCCLUSIVE DISEASE [None]
  - HALLUCINATION [None]
  - OFF LABEL USE [None]
